FAERS Safety Report 15760396 (Version 1)
Quarter: 2018Q4

REPORT INFORMATION
  Report Type: Spontaneous
  Country: VN (occurrence: VN)
  Receive Date: 20181226
  Receipt Date: 20181226
  Transmission Date: 20190205
  Serious: Yes (Death)
  Sender: FDA-Public Use
  Company Number: VN-MYLANLABS-2018M1095071

PATIENT
  Age: 40 Year
  Sex: Male

DRUGS (4)
  1. EPINEPHRINE. [Suspect]
     Active Substance: EPINEPHRINE
     Indication: VENTRICULAR FIBRILLATION
     Dosage: ADMINISTERED ACCORDING TO LATEST GUIDELINES OF AMERICAN HEART ASSOCIATION
     Route: 065
  2. AMIODARONE [Suspect]
     Active Substance: AMIODARONE
     Indication: VENTRICULAR FIBRILLATION
     Dosage: ADMINISTERED ACCORDING TO LATEST GUIDELINES OF AMERICAN HEART ASSOCIATION
     Route: 065
  3. LIDOCAINE. [Suspect]
     Active Substance: LIDOCAINE
     Indication: VENTRICULAR FIBRILLATION
     Dosage: ADMINISTERED ACCORDING TO LATEST GUIDELINES OF AMERICAN HEART ASSOCIATION
     Route: 065
  4. MAGNESIUM SULFATE. [Suspect]
     Active Substance: MAGNESIUM SULFATE
     Indication: VENTRICULAR FIBRILLATION
     Dosage: ADMINISTERED ACCORDING TO LATEST GUIDELINES OF AMERICAN HEART ASSOCIATION
     Route: 065

REACTIONS (1)
  - Drug ineffective [Fatal]
